FAERS Safety Report 4308075-5 (Version None)
Quarter: 2004Q1

REPORT INFORMATION
  Report Type: 
  Country: None (occurrence: None)
  Receive Date: 20040301
  Receipt Date: 20030428
  Transmission Date: 20041129
  Serious: No
  Sender: FDA-Public Use
  Company Number: US-BRISTOL-MYERS SQUIBB COMPANY-12256954

PATIENT
  Age: 56 Year
  Sex: Female

DRUGS (3)
  1. GLUCOPHAGE [Suspect]
     Route: 048
     Dates: start: 19990101, end: 20021101
  2. AVANDIA [Suspect]
     Indication: DIABETES MELLITUS NON-INSULIN-DEPENDENT
     Route: 048
     Dates: start: 19990101, end: 20021101
  3. CELEBREX [Concomitant]
     Dates: end: 20021101

REACTIONS (2)
  - SWELLING [None]
  - WEIGHT INCREASED [None]
